FAERS Safety Report 7860018-3 (Version None)
Quarter: 2011Q4

REPORT INFORMATION
  Report Type: 
  Country: None (occurrence: None)
  Receive Date: 20111025
  Receipt Date: 20111010
  Transmission Date: 20120403
  Serious: Yes (Hospitalization)
  Sender: FDA-Public Use
  Company Number: 2011SP048092

PATIENT
  Age: 64 Year
  Sex: Female

DRUGS (6)
  1. DEXAMETHASONE SODIUM PHOSPHATE [Concomitant]
  2. FRISIUM [Concomitant]
  3. RABEPRAZOLE SODIUM [Concomitant]
  4. TEMODAL [Suspect]
     Indication: GLIOBLASTOMA MULTIFORME
     Dosage: 110 MG;QD;PO, 80 MG;QD;PO
     Route: 048
     Dates: start: 20110902, end: 20110930
  5. TEMODAL [Suspect]
     Indication: GLIOBLASTOMA MULTIFORME
     Dosage: 110 MG;QD;PO, 80 MG;QD;PO
     Route: 048
     Dates: start: 20111001, end: 20111005
  6. KEPPRA [Concomitant]

REACTIONS (2)
  - HELLP SYNDROME [None]
  - THROMBOCYTOPENIA [None]
